FAERS Safety Report 4811487-4 (Version None)
Quarter: 2005Q4

REPORT INFORMATION
  Report Type: 
  Country: None (occurrence: None)
  Receive Date: 20051027
  Receipt Date: 20051013
  Transmission Date: 20060501
  Serious: Yes (Other)
  Sender: FDA-Public Use
  Company Number: DE-GILEAD-2005-0008809

PATIENT
  Sex: Male

DRUGS (1)
  1. HEPSERA [Suspect]

REACTIONS (2)
  - HEPATITIS B DNA ASSAY [None]
  - OSTEONECROSIS [None]
